FAERS Safety Report 8835613 (Version 1)
Quarter: 2012Q4

REPORT INFORMATION
  Report Type: 
  Country: GB (occurrence: GB)
  Receive Date: 20121011
  Receipt Date: 20121011
  Transmission Date: 20130627
  Serious: Yes (Other)
  Sender: FDA-Public Use
  Company Number: GB-JNJFOC-20121006358

PATIENT
  Age: 61 Year
  Sex: Female
  Weight: 110 kg

DRUGS (19)
  1. XARELTO [Suspect]
     Indication: HIP ARTHROPLASTY
     Route: 048
     Dates: start: 20120908, end: 20120919
  2. XARELTO [Suspect]
     Indication: THROMBOSIS PROPHYLAXIS
     Route: 048
     Dates: start: 20120908, end: 20120919
  3. FOLIC ACID [Concomitant]
  4. PARACETAMOL [Concomitant]
  5. PERINDOPRIL [Concomitant]
  6. SIMVASTATIN [Concomitant]
  7. LANSOPRAZOLE [Concomitant]
  8. LEVOTHYROXINE [Concomitant]
  9. METHOTREXATE [Concomitant]
  10. MOMETASONE [Concomitant]
  11. MONTELUKAST [Concomitant]
  12. MORPHINE SULFATE [Concomitant]
  13. TOLTERODINE [Concomitant]
  14. HYDROXYCHLOROQUINE [Concomitant]
  15. CETIRIZINE [Concomitant]
  16. CELECOXIB [Concomitant]
  17. TRAMADOL [Concomitant]
  18. ACETYLSALICYLIC ACID [Concomitant]
  19. BISOPROLOL [Concomitant]

REACTIONS (2)
  - Deep vein thrombosis postoperative [Not Recovered/Not Resolved]
  - Pain in extremity [Unknown]
